FAERS Safety Report 7490587-7 (Version None)
Quarter: 2011Q2

REPORT INFORMATION
  Report Type: 
  Country: None (occurrence: None)
  Receive Date: 20110518
  Receipt Date: 20110518
  Transmission Date: 20111010
  Serious: No
  Sender: FDA-Public Use
  Company Number: None

PATIENT

DRUGS (2)
  1. ALBUMIN (HUMAN) [Suspect]
  2. ALBUMIN (HUMAN) [Suspect]

REACTIONS (2)
  - MEDICATION ERROR [None]
  - PRODUCT LABEL ISSUE [None]
